FAERS Safety Report 4499711-1 (Version None)
Quarter: 2004Q4

REPORT INFORMATION
  Report Type: 
  Country: None (occurrence: None)
  Receive Date: 20041112
  Receipt Date: 20040622
  Transmission Date: 20050328
  Serious: Yes (Other)
  Sender: FDA-Public Use
  Company Number: 200414778US

PATIENT
  Sex: Male

DRUGS (11)
  1. TAXOTERE [Suspect]
     Indication: LUNG NEOPLASM MALIGNANT
     Route: 042
     Dates: start: 20040602, end: 20040616
  2. ZOFRAN [Concomitant]
     Route: 042
  3. BENADRYL /OLD FORM/ [Concomitant]
     Route: 042
  4. PEPCID [Concomitant]
     Route: 042
  5. EPOGEN [Concomitant]
     Dosage: DOSE: UNK
     Route: 058
  6. LIPITOR [Concomitant]
     Route: 048
  7. ATENOLOL [Concomitant]
     Route: 048
  8. ASPIRIN [Concomitant]
     Route: 048
  9. LEVOXYL [Concomitant]
     Dosage: DOSE: UNK
  10. LISINOPRIL [Concomitant]
     Dosage: DOSE: UNK
  11. GLUCOPHAGE [Concomitant]
     Indication: DIABETES MELLITUS
     Dosage: DOSE: UNK

REACTIONS (10)
  - BLOOD GLUCOSE INCREASED [None]
  - HAEMATOCRIT DECREASED [None]
  - HAEMOGLOBIN DECREASED [None]
  - INJECTION SITE EXTRAVASATION [None]
  - LYMPHADENOPATHY [None]
  - MEDIASTINAL DISORDER [None]
  - PHLEBITIS SUPERFICIAL [None]
  - PLEURAL EFFUSION [None]
  - PULMONARY MASS [None]
  - SKIN NECROSIS [None]
